FAERS Safety Report 18213330 (Version 5)
Quarter: 2021Q1

REPORT INFORMATION
  Report Type: Spontaneous
  Country: US (occurrence: US)
  Receive Date: 20200831
  Receipt Date: 20210225
  Transmission Date: 20210419
  Serious: Yes (Other)
  Sender: FDA-Public Use
  Company Number: US-AKCEA THERAPEUTICS-2020IS001358

PATIENT
  Age: 67 Year
  Sex: Male

DRUGS (3)
  1. MIDODRINE [Concomitant]
     Active Substance: MIDODRINE
  2. TEGSEDI [Suspect]
     Active Substance: INOTERSEN SODIUM
     Indication: HEREDITARY NEUROPATHIC AMYLOIDOSIS
     Route: 058
     Dates: start: 20200409, end: 20200923
  3. ISSD (INTEGRATED SYRINGE SAFETY DEVICE) [Suspect]
     Active Substance: DEVICE

REACTIONS (13)
  - Urine leukocyte esterase positive [Not Recovered/Not Resolved]
  - Orthostatic hypotension [Unknown]
  - Aspartate aminotransferase abnormal [Not Recovered/Not Resolved]
  - Crystal urine present [Unknown]
  - Dizziness [Unknown]
  - Platelet count decreased [Not Recovered/Not Resolved]
  - Protein urine present [Not Recovered/Not Resolved]
  - Urine protein/creatinine ratio increased [Not Recovered/Not Resolved]
  - Urinary casts [Unknown]
  - Urinary sediment present [Unknown]
  - Renal impairment [Unknown]
  - Bacterial test positive [Not Recovered/Not Resolved]
  - White blood cells urine positive [Unknown]
